FAERS Safety Report 17011363 (Version 1)
Quarter: 2019Q4

REPORT INFORMATION
  Report Type: Spontaneous
  Country: US (occurrence: US)
  Receive Date: 20191108
  Receipt Date: 20191108
  Transmission Date: 20200122
  Serious: Yes (Other)
  Sender: FDA-Public Use
  Company Number: US-NOVOPROD-666078

PATIENT
  Sex: Female

DRUGS (1)
  1. TRESIBA [Suspect]
     Active Substance: INSULIN DEGLUDEC
     Indication: DEVICE THERAPY
     Dosage: UNK
     Route: 058

REACTIONS (4)
  - Hypoglycaemic unconsciousness [Unknown]
  - Incorrect dose administered by device [Unknown]
  - Expired product administered [Unknown]
  - Device malfunction [Unknown]
